FAERS Safety Report 8874151 (Version 20)
Quarter: 2019Q2

REPORT INFORMATION
  Report Type: Report from Study
  Country: BR (occurrence: BR)
  Receive Date: 20121023
  Receipt Date: 20190426
  Transmission Date: 20190711
  Serious: Yes (Hospitalization, Other)
  Sender: FDA-Public Use
  Company Number: BR-ROCHE-700688

PATIENT
  Age: 43 Year
  Sex: Female
  Weight: 52 kg

DRUGS (17)
  1. RIVOTRIL [Suspect]
     Active Substance: CLONAZEPAM
     Indication: INSOMNIA
     Route: 065
  2. PROPANOLOL [PROPRANOLOL] [Suspect]
     Active Substance: PROPRANOLOL HYDROCHLORIDE
     Indication: PRODUCT USED FOR UNKNOWN INDICATION
     Route: 065
  3. PANTOPRAZOLE [Concomitant]
     Active Substance: PANTOPRAZOLE
     Route: 065
  4. PROPRANOLOL [Concomitant]
     Active Substance: PROPRANOLOL HYDROCHLORIDE
  5. MABTHERA [Suspect]
     Active Substance: RITUXIMAB
     Dosage: LATEST INFUSION: 16-OCT-2017.
     Route: 042
     Dates: start: 2015
  6. SOLU-MEDROL [Concomitant]
     Active Substance: METHYLPREDNISOLONE SODIUM SUCCINATE
  7. METICORTEN [Concomitant]
     Active Substance: PREDNISONE
     Route: 065
  8. BRINZOLAMID [Concomitant]
  9. CORTISONE [Concomitant]
     Active Substance: CORTISONE\HYDROCORTISONE
     Route: 065
  10. MABTHERA [Suspect]
     Active Substance: RITUXIMAB
     Indication: RHEUMATOID ARTHRITIS
     Route: 042
     Dates: start: 2007
  11. SERTRALINE [Concomitant]
     Active Substance: SERTRALINE HYDROCHLORIDE
     Route: 065
  12. MABTHERA [Suspect]
     Active Substance: RITUXIMAB
     Route: 042
     Dates: start: 20100401
  13. MABTHERA [Suspect]
     Active Substance: RITUXIMAB
     Dosage: MOST RECENT INFUSION ON 29/APR/2016
     Route: 042
     Dates: start: 20130311
  14. ESCITALOPRAM [Concomitant]
     Active Substance: ESCITALOPRAM OXALATE
     Route: 065
  15. METICORTEN [Concomitant]
     Active Substance: PREDNISONE
     Route: 065
  16. PHENERGAN [Suspect]
     Active Substance: PROMETHAZINE HYDROCHLORIDE
     Indication: PREMEDICATION
     Route: 065
  17. MABTHERA [Suspect]
     Active Substance: RITUXIMAB
     Route: 042
     Dates: start: 20120401, end: 20120430

REACTIONS (38)
  - Laryngeal disorder [Recovered/Resolved]
  - Musculoskeletal stiffness [Not Recovered/Not Resolved]
  - Hypersensitivity [Unknown]
  - Peripheral swelling [Not Recovered/Not Resolved]
  - Arthralgia [Unknown]
  - Malignant melanoma [Not Recovered/Not Resolved]
  - Chest pain [Recovered/Resolved]
  - Fatigue [Recovering/Resolving]
  - Oral herpes [Unknown]
  - Nodule [Recovered/Resolved]
  - Depression [Unknown]
  - Arthropathy [Unknown]
  - Rhinitis [Unknown]
  - Visual impairment [Unknown]
  - Pain in extremity [Unknown]
  - Weight increased [Not Recovered/Not Resolved]
  - Somnolence [Recovered/Resolved]
  - Arrhythmia [Recovered/Resolved]
  - Candida infection [Unknown]
  - Gait disturbance [Unknown]
  - Foot deformity [Unknown]
  - Ill-defined disorder [Unknown]
  - Therapeutic response decreased [Unknown]
  - Haematoma [Unknown]
  - Tachycardia [Recovered/Resolved]
  - Neoplasm [Unknown]
  - Blood pressure decreased [Recovered/Resolved]
  - Swelling [Not Recovered/Not Resolved]
  - Nodule [Unknown]
  - Dengue fever [Recovered/Resolved]
  - Arrhythmia [Unknown]
  - Arthrodesis [Not Recovered/Not Resolved]
  - Arthralgia [Not Recovered/Not Resolved]
  - Hyperhidrosis [Unknown]
  - Pain [Unknown]
  - Medication error [Unknown]
  - Rheumatoid arthritis [Unknown]
  - Sinusitis [Unknown]

NARRATIVE: CASE EVENT DATE: 2007
